FAERS Safety Report 25808010 (Version 1)
Quarter: 2025Q3

REPORT INFORMATION
  Report Type: Spontaneous
  Country: US (occurrence: US)
  Receive Date: 20250916
  Receipt Date: 20250916
  Transmission Date: 20251020
  Serious: No
  Sender: Alora Pharma
  Company Number: US-OSMOTICA PHARMACEUTICALS-2025ALO02213

PATIENT
  Sex: Female

DRUGS (14)
  1. METHYLPHENIDATE HYDROCHLORIDE [Suspect]
     Active Substance: METHYLPHENIDATE HYDROCHLORIDE
     Indication: Attention deficit hyperactivity disorder
     Dosage: 27 MG, 1X/DAY [FILL DATE: 10-JUN-2024]
     Route: 048
  2. METHYLPHENIDATE HYDROCHLORIDE [Suspect]
     Active Substance: METHYLPHENIDATE HYDROCHLORIDE
     Indication: Autism spectrum disorder
     Dosage: 27 MG, 1X/DAY [FILL DATE: 10-JUL-2024]
     Route: 048
  3. METHYLPHENIDATE HYDROCHLORIDE [Suspect]
     Active Substance: METHYLPHENIDATE HYDROCHLORIDE
     Dosage: 27 MG, 1X/DAY  [FILL DATE: 09-AUG-2024]
     Route: 048
  4. METHYLPHENIDATE HYDROCHLORIDE [Suspect]
     Active Substance: METHYLPHENIDATE HYDROCHLORIDE
     Dosage: 27 MG, 1X/DAY [FILL DATE: 07-SEP-2024]
     Route: 048
  5. METHYLPHENIDATE HYDROCHLORIDE [Suspect]
     Active Substance: METHYLPHENIDATE HYDROCHLORIDE
     Dosage: 27 MG, 1X/DAY [FILL DATE:12-OCT-2024]
     Route: 048
  6. METHYLPHENIDATE HYDROCHLORIDE [Suspect]
     Active Substance: METHYLPHENIDATE HYDROCHLORIDE
     Dosage: 27 MG, 1X/DAY [FILL DATE: 14-NOV-2024]
     Route: 048
  7. METHYLPHENIDATE HYDROCHLORIDE [Suspect]
     Active Substance: METHYLPHENIDATE HYDROCHLORIDE
     Dosage: 27 MG, 1X/DAY [FILL DATE: 05-DEC-2024 (10 DAY SUPPLY)]
     Route: 048
  8. METHYLPHENIDATE HYDROCHLORIDE [Suspect]
     Active Substance: METHYLPHENIDATE HYDROCHLORIDE
     Dosage: 27 MG, 1X/DAY [FILL DATE: 15-DEC-2024]
     Route: 048
  9. METHYLPHENIDATE HYDROCHLORIDE [Suspect]
     Active Substance: METHYLPHENIDATE HYDROCHLORIDE
     Dosage: 27 MG, 1X/DAY [FILL DATE: 14-JAN-2025]
     Route: 048
  10. METHYLPHENIDATE HYDROCHLORIDE [Suspect]
     Active Substance: METHYLPHENIDATE HYDROCHLORIDE
     Dosage: 27 MG, 1X/DAY [FILL DATE: 12-FEB-2025]
     Route: 048
  11. METHYLPHENIDATE HYDROCHLORIDE [Suspect]
     Active Substance: METHYLPHENIDATE HYDROCHLORIDE
     Dosage: 27 MG, 1X/DAY [FILL DATE: 17-MAR-2025]
     Route: 048
  12. METHYLPHENIDATE HYDROCHLORIDE [Suspect]
     Active Substance: METHYLPHENIDATE HYDROCHLORIDE
     Dosage: 27 MG, 1X/DAY [FILL DATE: 16-APR-2025]
     Route: 048
  13. METHYLPHENIDATE HYDROCHLORIDE [Suspect]
     Active Substance: METHYLPHENIDATE HYDROCHLORIDE
     Dosage: 27 MG, 1X/DAY [FILL DATE: 05-MAY-2025]
     Route: 048
  14. METHYLPHENIDATE HYDROCHLORIDE [Suspect]
     Active Substance: METHYLPHENIDATE HYDROCHLORIDE
     Dosage: 27 MG, 1X/DAY [FILL DATE: 05-JUN-2025]
     Route: 048

REACTIONS (3)
  - Gluten sensitivity [Unknown]
  - Nausea [Unknown]
  - Vomiting [Unknown]
